FAERS Safety Report 23705144 (Version 1)
Quarter: 2024Q2

REPORT INFORMATION
  Report Type: Spontaneous
  Country: IT (occurrence: IT)
  Receive Date: 20240404
  Receipt Date: 20240404
  Transmission Date: 20240716
  Serious: Yes (Other)
  Sender: FDA-Public Use
  Company Number: IT-SUN PHARMACEUTICAL INDUSTRIES LTD-2024RR-440470

PATIENT
  Age: 57 Year
  Sex: Female

DRUGS (3)
  1. BOSENTAN [Suspect]
     Active Substance: BOSENTAN
     Indication: Ulcer
     Dosage: 62.5 MILLIGRAM, BID
     Route: 065
  2. BOSENTAN [Suspect]
     Active Substance: BOSENTAN
     Dosage: 125 MILLIGRAM, BID
     Route: 065
  3. SILDENAFIL [Suspect]
     Active Substance: SILDENAFIL
     Indication: Ulcer
     Dosage: UNK
     Route: 065

REACTIONS (3)
  - Disease recurrence [Recovered/Resolved]
  - Drug ineffective [Unknown]
  - Off label use [Unknown]
